FAERS Safety Report 4397395-4 (Version None)
Quarter: 2004Q3

REPORT INFORMATION
  Report Type: 
  Country: None (occurrence: None)
  Receive Date: 20040708
  Receipt Date: 20040628
  Transmission Date: 20050211
  Serious: Yes (Other)
  Sender: FDA-Public Use
  Company Number: 2004221079SE

PATIENT
  Age: 60 Year
  Sex: Female
  Weight: 70.5 kg

DRUGS (1)
  1. GENOTROPIN [Suspect]
     Indication: HYPOPITUITARISM
     Dosage: 1.5 IU, QD, SUBCUTANEOUS
     Route: 058
     Dates: start: 19981022, end: 20040628

REACTIONS (1)
  - BREAST CANCER FEMALE [None]
